FAERS Safety Report 19994012 (Version 2)
Quarter: 2021Q4

REPORT INFORMATION
  Report Type: Report from Study
  Country: CN (occurrence: CN)
  Receive Date: 20211025
  Receipt Date: 20211210
  Transmission Date: 20220303
  Serious: Yes (Life-Threatening, Hospitalization)
  Sender: FDA-Public Use
  Company Number: CN-JAZZ-2021-CN-018949

PATIENT
  Age: 66 Year
  Sex: Female
  Weight: 64 kg

DRUGS (6)
  1. LURBINECTEDIN [Suspect]
     Active Substance: LURBINECTEDIN
     Indication: Small cell lung cancer
     Dosage: 5.3 MILLIGRAM, Q21D
     Route: 042
     Dates: start: 20210918, end: 20210918
  2. LURBINECTEDIN [Suspect]
     Active Substance: LURBINECTEDIN
     Dosage: Q21D,4.3MG
     Route: 042
     Dates: start: 20211029, end: 20211029
  3. LURBINECTEDIN [Suspect]
     Active Substance: LURBINECTEDIN
     Dosage: Q21D,4.3MG
     Route: 042
     Dates: start: 20211119, end: 20211119
  4. SITAGLIPTIN [Concomitant]
     Active Substance: SITAGLIPTIN
     Dosage: UNK
     Dates: start: 202101
  5. INSULIN DETEMIR [Concomitant]
     Active Substance: INSULIN DETEMIR
     Dosage: UNK
     Dates: start: 202101
  6. CANAGLIFLOZIN [Concomitant]
     Active Substance: CANAGLIFLOZIN
     Indication: Small cell lung cancer
     Dosage: UNK
     Dates: start: 202101

REACTIONS (3)
  - Ketoacidosis [Recovered/Resolved]
  - White blood cell count decreased [Recovering/Resolving]
  - Neutrophil count decreased [Not Recovered/Not Resolved]

NARRATIVE: CASE EVENT DATE: 20210927
